FAERS Safety Report 20509493 (Version 3)
Quarter: 2024Q4

REPORT INFORMATION
  Report Type: Report from Study
  Country: US (occurrence: US)
  Receive Date: 20220224
  Receipt Date: 20241224
  Transmission Date: 20250115
  Serious: Yes (Other)
  Sender: ROCHE
  Company Number: US-ROCHE-2686129

PATIENT
  Age: 63 Year
  Sex: Female
  Weight: 68.04 kg

DRUGS (4)
  1. OCREVUS [Suspect]
     Active Substance: OCRELIZUMAB
     Indication: Multiple sclerosis
     Dosage: THERAPY START DATES: 03/OCT/2020: 22/MAR/2021
     Route: 042
     Dates: start: 20200922
  2. OCREVUS [Suspect]
     Active Substance: OCRELIZUMAB
     Dosage: 600 MG EVERY 6 MONTHS
     Route: 042
  3. NORCO [Concomitant]
     Active Substance: ACETAMINOPHEN\HYDROCODONE BITARTRATE
     Indication: Pain
     Dosage: STRENGTH: 10/325 MG ?10/325 MG UP TO 4 TIMES DAILY AS NEEDED? FREQUENCY TEXT:AS NEEDED
  4. ELIQUIS [Concomitant]
     Active Substance: APIXABAN
     Route: 048

REACTIONS (20)
  - Peripheral swelling [Not Recovered/Not Resolved]
  - Erythema [Recovered/Resolved]
  - Headache [Not Recovered/Not Resolved]
  - Joint swelling [Not Recovered/Not Resolved]
  - Feeling abnormal [Unknown]
  - Pain in extremity [Not Recovered/Not Resolved]
  - Drug ineffective [Unknown]
  - Herpes zoster [Not Recovered/Not Resolved]
  - Peripheral swelling [Not Recovered/Not Resolved]
  - Neuropathy peripheral [Unknown]
  - Pain [Unknown]
  - Insomnia [Unknown]
  - Multiple sclerosis [Unknown]
  - Blood glucose increased [Unknown]
  - Blood calcium increased [Unknown]
  - White blood cell count increased [Unknown]
  - Neutrophil count increased [Unknown]
  - Granulocyte count increased [Unknown]
  - Red blood cell count decreased [Unknown]
  - Eosinophil count increased [Unknown]

NARRATIVE: CASE EVENT DATE: 20200922
